FAERS Safety Report 8287287-2 (Version None)
Quarter: 2012Q2

REPORT INFORMATION
  Report Type: 
  Country: None (occurrence: None)
  Receive Date: 20120416
  Receipt Date: 20120416
  Transmission Date: 20120825
  Serious: Yes (Other)
  Sender: FDA-Public Use
  Company Number: None

PATIENT
  Age: 28 Year
  Sex: Female
  Weight: 49.895 kg

DRUGS (1)
  1. EFFEXOR XR [Suspect]
     Indication: DEPRESSION
     Dosage: 150MG
     Route: 048
     Dates: start: 20120113, end: 20120215

REACTIONS (7)
  - LOSS OF EMPLOYMENT [None]
  - DEPRESSION [None]
  - SUICIDE ATTEMPT [None]
  - MOOD SWINGS [None]
  - IMPAIRED WORK ABILITY [None]
  - ALCOHOL USE [None]
  - PERSONALITY CHANGE [None]
